FAERS Safety Report 18314144 (Version 1)
Quarter: 2020Q3

REPORT INFORMATION
  Report Type: Report from Study
  Country: US (occurrence: US)
  Receive Date: 20200925
  Receipt Date: 20200925
  Transmission Date: 20201103
  Serious: Yes (Other)
  Sender: FDA-Public Use
  Company Number: US-JNJFOC-A-US2019-195673

PATIENT
  Age: 74 Year
  Sex: Male

DRUGS (3)
  1. OPSUMIT [Suspect]
     Active Substance: MACITENTAN
     Indication: PULMONARY ARTERIAL HYPERTENSION
     Dosage: 10 MG, QD
     Route: 048
  2. SILDENAFIL CITRATE. [Concomitant]
     Active Substance: SILDENAFIL CITRATE
  3. ELIQUIS [Concomitant]
     Active Substance: APIXABAN

REACTIONS (8)
  - Atrial fibrillation [Unknown]
  - Cardiac pacemaker insertion [Unknown]
  - Headache [Recovered/Resolved]
  - Therapy non-responder [Unknown]
  - Fluid retention [Unknown]
  - Dyspnoea [Recovering/Resolving]
  - Rhinorrhoea [Unknown]
  - Condition aggravated [Unknown]
